FAERS Safety Report 23689969 (Version 2)
Quarter: 2024Q2

REPORT INFORMATION
  Report Type: Report from Study
  Country: US (occurrence: US)
  Receive Date: 20240401
  Receipt Date: 20240405
  Transmission Date: 20240716
  Serious: Yes (Other)
  Sender: FDA-Public Use
  Company Number: US-ABBVIE-5689185

PATIENT
  Sex: Female
  Weight: 263 kg

DRUGS (2)
  1. HUMIRA [Suspect]
     Active Substance: ADALIMUMAB
     Indication: Hidradenitis
     Dosage: FORM STRENGTH WAS 40 MILLIGRAM
     Route: 058
     Dates: start: 20230127
  2. HUMIRA [Suspect]
     Active Substance: ADALIMUMAB
     Dosage: FORM STRENGTH WAS 40 MILLIGRAM?FREQUENCY TEXT: BIWEEKLY
     Route: 058
     Dates: end: 202402

REACTIONS (2)
  - Rotator cuff syndrome [Recovering/Resolving]
  - Shoulder arthroplasty [Unknown]
